FAERS Safety Report 6488559-4 (Version None)
Quarter: 2009Q4

REPORT INFORMATION
  Report Type: 
  Country: None (occurrence: None)
  Receive Date: 20091210
  Receipt Date: 20091130
  Transmission Date: 20100525
  Serious: No
  Sender: FDA-Public Use
  Company Number: US-BAYER-200941632NA

PATIENT
  Age: 56 Year
  Sex: Female

DRUGS (1)
  1. MAGNEVIST [Suspect]
     Indication: SCAN
     Dosage: TOTAL DAILY DOSE: 14 ML
     Dates: start: 20091118, end: 20091118

REACTIONS (4)
  - NAUSEA [None]
  - PRURITUS [None]
  - THROAT IRRITATION [None]
  - URTICARIA [None]
